FAERS Safety Report 9312847 (Version 2)
Quarter: 2014Q1

REPORT INFORMATION
  Report Type: Spontaneous
  Country: US (occurrence: US)
  Receive Date: 20130528
  Receipt Date: 20140109
  Transmission Date: 20141002
  Serious: Yes (Hospitalization, Disabling, Other)
  Sender: FDA-Public Use
  Company Number: US-009507513-1305USA013037

PATIENT
  Sex: Male
  Weight: 71.47 kg

DRUGS (2)
  1. MK-0000 (111) [Suspect]
     Dosage: UNK
     Route: 048
  2. FINASTERIDE [Suspect]
     Dosage: UNK

REACTIONS (17)
  - Anxiety [Not Recovered/Not Resolved]
  - Obsessive-compulsive disorder [Not Recovered/Not Resolved]
  - Shoulder operation [Unknown]
  - Thyroidectomy [Unknown]
  - Depression [Not Recovered/Not Resolved]
  - Insomnia [Unknown]
  - Mental disorder [Unknown]
  - Intervertebral disc degeneration [Unknown]
  - Suicidal ideation [Unknown]
  - Amnesia [Unknown]
  - Organic erectile dysfunction [Not Recovered/Not Resolved]
  - Anxiety [Unknown]
  - Confusional state [Unknown]
  - Drug intolerance [Unknown]
  - Loss of libido [Unknown]
  - Depression [Unknown]
  - Sexual dysfunction [Not Recovered/Not Resolved]
